FAERS Safety Report 5536512-7 (Version None)
Quarter: 2007Q4

REPORT INFORMATION
  Report Type: 
  Country: None (occurrence: None)
  Receive Date: 20071206
  Receipt Date: 20071010
  Transmission Date: 20080405
  Serious: Yes (Other)
  Sender: FDA-Public Use
  Company Number: US-AMGEN-KDL245805

PATIENT
  Sex: Male
  Weight: 88.5 kg

DRUGS (2)
  1. ENBREL [Suspect]
     Indication: RHEUMATOID ARTHRITIS
     Route: 058
     Dates: start: 20070925, end: 20070926
  2. PLAQUENIL [Concomitant]
     Dates: start: 20020101

REACTIONS (3)
  - ANGIOEDEMA [None]
  - DYSPNOEA [None]
  - URTICARIA [None]
